FAERS Safety Report 9991585 (Version 1)
Quarter: 2014Q1

REPORT INFORMATION
  Report Type: Spontaneous
  Country: US (occurrence: US)
  Receive Date: 20140310
  Receipt Date: 20140310
  Transmission Date: 20141002
  Serious: Yes (Other)
  Sender: FDA-Public Use
  Company Number: US-PFIZER INC-2014068604

PATIENT
  Age: 59 Year
  Sex: Male
  Weight: 70.3 kg

DRUGS (4)
  1. LYRICA [Suspect]
     Indication: FIBROMYALGIA
     Dosage: 50 MG, 1X/DAY
     Route: 048
  2. CITALOPRAM [Concomitant]
     Indication: DEPRESSION
     Dosage: 40 MG, UNK
  3. DICLOFENAC [Concomitant]
     Dosage: 10 MG, UNK
  4. TRAZODONE [Concomitant]
     Indication: SLEEP DISORDER
     Dosage: UNK

REACTIONS (7)
  - Device breakage [Unknown]
  - Electric injury [Unknown]
  - Fall [Unknown]
  - Gait disturbance [Recovered/Resolved]
  - Blood cholesterol increased [Unknown]
  - Hypertension [Unknown]
  - Blood testosterone decreased [Unknown]
